FAERS Safety Report 8204367-8 (Version None)
Quarter: 2012Q1

REPORT INFORMATION
  Report Type: 
  Country: None (occurrence: None)
  Receive Date: 20120313
  Receipt Date: 20120313
  Transmission Date: 20120608
  Serious: No
  Sender: FDA-Public Use
  Company Number: None

PATIENT
  Sex: Male

DRUGS (1)
  1. ALBUTEROL SULFATE AND IPRATROPIUM BROMIDE [Suspect]
     Dosage: I VIAL
     Route: 055
     Dates: start: 20120105, end: 20120307

REACTIONS (3)
  - CHEST PAIN [None]
  - DYSPNOEA [None]
  - PRODUCT SUBSTITUTION ISSUE [None]
